FAERS Safety Report 4490065-3 (Version None)
Quarter: 2004Q4

REPORT INFORMATION
  Report Type: 
  Country: None (occurrence: None)
  Receive Date: 20041027
  Receipt Date: 20041012
  Transmission Date: 20050328
  Serious: Yes (Death, Hospitalization)
  Sender: FDA-Public Use
  Company Number: 2004-BP-08098RO

PATIENT
  Age: 77 Year
  Sex: Male

DRUGS (7)
  1. LEUCOVORIN CALCIUM [Suspect]
     Indication: COLORECTAL CANCER
     Dosage: 60 MG/DAY, PO
     Route: 048
     Dates: start: 20040805, end: 20040830
  2. UFT [Suspect]
     Indication: COLORECTAL CANCER
     Dosage: 500 MG/DAY, PO
     Route: 048
     Dates: start: 20040805, end: 20040830
  3. RAMIPRIL [Concomitant]
  4. NORVASC [Concomitant]
  5. METOPROLOL TARTRATE [Concomitant]
  6. AMARYL [Concomitant]
  7. PLAVIX [Concomitant]

REACTIONS (2)
  - DIARRHOEA [None]
  - HYPOVOLAEMIC SHOCK [None]
